FAERS Safety Report 9388947 (Version 2)
Quarter: 2013Q3

REPORT INFORMATION
  Report Type: Report from Study
  Country: DE (occurrence: DE)
  Receive Date: 20130708
  Receipt Date: 20130904
  Transmission Date: 20140515
  Serious: Yes (Other)
  Sender: FDA-Public Use
  Company Number: PHHY2013DE069365

PATIENT
  Sex: Female

DRUGS (8)
  1. AFINITOR [Suspect]
     Indication: BREAST CANCER METASTATIC
     Dosage: 10 MG, QD
     Route: 048
     Dates: start: 20130131, end: 20130331
  2. AFINITOR [Suspect]
     Dosage: 10 MG, QD
     Route: 048
     Dates: start: 20130402, end: 20130610
  3. AFINITOR [Suspect]
     Dosage: 10 MG, QD
     Route: 048
     Dates: start: 20130612
  4. EXEMESTANE [Concomitant]
     Indication: BREAST CANCER METASTATIC
     Dosage: 25 MG, QD
     Route: 048
     Dates: start: 20130131, end: 20130331
  5. EXEMESTANE [Concomitant]
     Dosage: 25 MG, QD
     Route: 048
     Dates: start: 20130402
  6. BISPHOSPHONATES [Concomitant]
     Indication: MUSCULOSKELETAL DISORDER
  7. PANTOPRAZOLE [Concomitant]
     Dosage: 40 MG
     Dates: start: 20130122
  8. MCP//METOCLOPRAMIDE [Concomitant]
     Dosage: 20 DRP
     Dates: start: 20130221

REACTIONS (3)
  - Upper gastrointestinal haemorrhage [Recovered/Resolved]
  - Gastric haemorrhage [Recovered/Resolved]
  - Pyloric stenosis [Recovered/Resolved]
